FAERS Safety Report 4407383-7 (Version None)
Quarter: 2004Q3

REPORT INFORMATION
  Report Type: 
  Country: None (occurrence: None)
  Receive Date: 20040723
  Receipt Date: 20040723
  Transmission Date: 20050211
  Serious: Yes (Hospitalization)
  Sender: FDA-Public Use
  Company Number: None

PATIENT
  Sex: Female
  Weight: 52.1637 kg

DRUGS (4)
  1. LIPITOR [Suspect]
     Dosage: 40 MG ORAL
     Route: 048
     Dates: end: 20040628
  2. ESTROSTEP [Concomitant]
  3. ASPIRIN [Concomitant]
  4. M.V.I. [Concomitant]

REACTIONS (7)
  - ARTHRALGIA [None]
  - DYSPHAGIA [None]
  - MITRAL VALVE INCOMPETENCE [None]
  - NIGHT SWEATS [None]
  - PAIN [None]
  - RASH [None]
  - RHABDOMYOLYSIS [None]
